FAERS Safety Report 6619350-3 (Version None)
Quarter: 2010Q1

REPORT INFORMATION
  Report Type: 
  Country: None (occurrence: None)
  Receive Date: 20100308
  Receipt Date: 20091119
  Transmission Date: 20100710
  Serious: No
  Sender: FDA-Public Use
  Company Number: US-TYCO HEALTHCARE/MALLINCKRODT-T200902127

PATIENT
  Sex: Female
  Weight: 58.957 kg

DRUGS (6)
  1. RESTORIL [Suspect]
     Indication: INSOMNIA
     Dosage: UNK
     Route: 048
     Dates: start: 20091118
  2. CARAFATE [Concomitant]
     Indication: GASTROINTESTINAL DISORDER
     Dosage: 1-2 TSP, QID
     Route: 048
  3. CLONAZEPAM [Concomitant]
     Indication: RESTLESS LEGS SYNDROME
     Dosage: UNK
     Route: 048
  4. XANAX [Concomitant]
     Indication: INSOMNIA
     Dosage: 0.5 MG, TID
     Route: 048
  5. FENTANYL [Concomitant]
     Indication: PAIN
     Dosage: 25 UG, Q 3-4 DAYS
     Route: 062
  6. ROXICODONE [Concomitant]
     Indication: PAIN
     Dosage: 15 MG, Q4H
     Route: 048

REACTIONS (1)
  - THERAPEUTIC RESPONSE UNEXPECTED [None]
